FAERS Safety Report 25912104 (Version 1)
Quarter: 2025Q4

REPORT INFORMATION
  Report Type: Report from Study
  Country: IN (occurrence: IN)
  Receive Date: 20251013
  Receipt Date: 20251013
  Transmission Date: 20260118
  Serious: Yes (Death)
  Sender: ROCHE
  Company Number: IN-ROCHE-10000245139

PATIENT
  Age: 60 Year
  Sex: Male

DRUGS (1)
  1. ALECENSA [Suspect]
     Active Substance: ALECTINIB HYDROCHLORIDE
     Indication: Non-small cell lung cancer metastatic
     Dosage: DOSE DECREASED FROM 600 MG TO 300 MG.
     Route: 048
     Dates: start: 20230510

REACTIONS (3)
  - Blood creatinine abnormal [Unknown]
  - Off label use [Unknown]
  - Death [Fatal]
